FAERS Safety Report 23910716 (Version 1)
Quarter: 2024Q2

REPORT INFORMATION
  Report Type: Spontaneous
  Country: US (occurrence: US)
  Receive Date: 20240528
  Receipt Date: 20240528
  Transmission Date: 20240716
  Serious: Yes (Other)
  Sender: FDA-Public Use
  Company Number: US-AMGEN-USASP2024102979

PATIENT

DRUGS (12)
  1. TRASTUZUMAB [Suspect]
     Active Substance: TRASTUZUMAB
     Indication: HER2 positive gastric cancer
     Dosage: UNK
     Route: 065
  2. TRASTUZUMAB [Suspect]
     Active Substance: TRASTUZUMAB
     Indication: Oesophageal adenocarcinoma
  3. TRASTUZUMAB [Suspect]
     Active Substance: TRASTUZUMAB
     Indication: Oesophageal adenocarcinoma
  4. TRASTUZUMAB [Suspect]
     Active Substance: TRASTUZUMAB
     Indication: Gastric cancer
  5. TRASTUZUMAB [Suspect]
     Active Substance: TRASTUZUMAB
     Indication: Colorectal cancer
  6. TRASTUZUMAB [Suspect]
     Active Substance: TRASTUZUMAB
     Indication: Gastrointestinal carcinoma
  7. PERTUZUMAB [Suspect]
     Active Substance: PERTUZUMAB
     Indication: HER2 positive gastric cancer
     Route: 065
  8. PERTUZUMAB [Suspect]
     Active Substance: PERTUZUMAB
     Indication: Oesophageal adenocarcinoma
  9. PERTUZUMAB [Suspect]
     Active Substance: PERTUZUMAB
     Indication: Oesophageal adenocarcinoma
  10. PERTUZUMAB [Suspect]
     Active Substance: PERTUZUMAB
     Indication: Gastric cancer
  11. PERTUZUMAB [Suspect]
     Active Substance: PERTUZUMAB
     Indication: Colorectal cancer
  12. PERTUZUMAB [Suspect]
     Active Substance: PERTUZUMAB
     Indication: Gastrointestinal carcinoma

REACTIONS (2)
  - Cardiotoxicity [Unknown]
  - Off label use [Unknown]
